FAERS Safety Report 25709862 (Version 1)
Quarter: 2025Q3

REPORT INFORMATION
  Report Type: Spontaneous
  Country: US (occurrence: US)
  Receive Date: 20250821
  Receipt Date: 20250821
  Transmission Date: 20251021
  Serious: Yes (Hospitalization, Other)
  Sender: PROCTER AND GAMBLE
  Company Number: US-PROCTER+GAMBLE-PH25012560

PATIENT

DRUGS (6)
  1. DIPHENHYDRAMINE HYDROCHLORIDE [Suspect]
     Active Substance: DIPHENHYDRAMINE HYDROCHLORIDE
     Dates: start: 2024
  2. FENTANYL [Suspect]
     Active Substance: FENTANYL
     Dates: start: 2024
  3. MEDETOMIDINE [Suspect]
     Active Substance: MEDETOMIDINE
     Dates: start: 2024
  4. XYLAZINE [Suspect]
     Active Substance: XYLAZINE
     Dates: start: 2024
  5. COCAINE [Suspect]
     Active Substance: COCAINE
     Dates: start: 2024
  6. LIDOCAINE [Suspect]
     Active Substance: LIDOCAINE
     Dates: start: 2024

REACTIONS (3)
  - Toxicity to various agents [Unknown]
  - Sinus bradycardia [Unknown]
  - Overdose [Unknown]

NARRATIVE: CASE EVENT DATE: 20240101
